FAERS Safety Report 25148206 (Version 2)
Quarter: 2025Q3

REPORT INFORMATION
  Report Type: Spontaneous
  Country: US (occurrence: US)
  Receive Date: 20250402
  Receipt Date: 20250716
  Transmission Date: 20251020
  Serious: Yes (Other)
  Sender: COOPERSURGICAL
  Company Number: US-COOPERSURGICAL, INC.-2025CPS002297

PATIENT
  Age: 41 Year
  Sex: Female
  Weight: 68.934 kg

DRUGS (3)
  1. PARAGARD T 380A [Suspect]
     Active Substance: COPPER
     Route: 015
     Dates: start: 20120316
  2. BUSPAR [Concomitant]
     Active Substance: BUSPIRONE HYDROCHLORIDE
     Dates: end: 202211
  3. ATIVAN [Concomitant]
     Active Substance: LORAZEPAM

REACTIONS (11)
  - Hysterectomy [Recovered/Resolved]
  - Salpingectomy [Recovered/Resolved]
  - Device breakage [Recovered/Resolved]
  - Foreign body in reproductive tract [Recovered/Resolved]
  - Complication of device removal [Recovered/Resolved]
  - Embedded device [Recovered/Resolved]
  - Sexual dysfunction [Recovered/Resolved]
  - Emotional distress [Recovered/Resolved]
  - Emotional disorder [Unknown]
  - Abnormal uterine bleeding [Recovered/Resolved]
  - Heavy menstrual bleeding [Unknown]

NARRATIVE: CASE EVENT DATE: 20150101
